FAERS Safety Report 22068544 (Version 2)
Quarter: 2023Q2

REPORT INFORMATION
  Report Type: Report from Study
  Country: US (occurrence: US)
  Receive Date: 20230307
  Receipt Date: 20230618
  Transmission Date: 20230721
  Serious: Yes (Hospitalization, Other)
  Sender: FDA-Public Use
  Company Number: US-ARGENX-2023-ARGX-US000651

PATIENT
  Age: 45 Year
  Sex: Male

DRUGS (1)
  1. VYVGART [Suspect]
     Active Substance: EFGARTIGIMOD ALFA-FCAB
     Indication: Myasthenia gravis
     Route: 042

REACTIONS (7)
  - COVID-19 [Recovered/Resolved]
  - Transient ischaemic attack [Recovered/Resolved]
  - Dysarthria [Unknown]
  - Autoscopy [Unknown]
  - Pain in extremity [Recovered/Resolved]
  - Thrombosis [Unknown]
  - Memory impairment [Unknown]

NARRATIVE: CASE EVENT DATE: 20220901
